FAERS Safety Report 8334397-7 (Version None)
Quarter: 2012Q2

REPORT INFORMATION
  Report Type: 
  Country: None (occurrence: None)
  Receive Date: 20120503
  Receipt Date: 20120418
  Transmission Date: 20120825
  Serious: Yes (Death)
  Sender: FDA-Public Use
  Company Number: CN-JNJFOC-20110712323

PATIENT
  Sex: Male
  Weight: 62 kg

DRUGS (2)
  1. SPORANOX [Suspect]
     Indication: ANTIFUNGAL PROPHYLAXIS
     Route: 042
     Dates: start: 20110505, end: 20110524
  2. SPORANOX [Suspect]
     Indication: LUNG INFECTION
     Route: 042
     Dates: start: 20110505, end: 20110524

REACTIONS (3)
  - INFECTION [None]
  - GRAFT VERSUS HOST DISEASE [None]
  - CARDIOPULMONARY FAILURE [None]
